FAERS Safety Report 25310629 (Version 1)
Quarter: 2025Q2

REPORT INFORMATION
  Report Type: Report from Study
  Country: BR (occurrence: BR)
  Receive Date: 20250514
  Receipt Date: 20250514
  Transmission Date: 20250717
  Serious: Yes (Hospitalization)
  Sender: AMGEN
  Company Number: BR-AMGEN-BRANI2025092768

PATIENT
  Age: 10 Year
  Sex: Male
  Weight: 25 kg

DRUGS (1)
  1. CYSTEAMINE BITARTRATE [Suspect]
     Active Substance: CYSTEAMINE BITARTRATE
     Indication: Cystinosis
     Dosage: 75 MILLIGRAM, Q12H (750MG/DAY) (5 CAPSULES)
     Route: 065
     Dates: start: 2025

REACTIONS (3)
  - Pyrexia [Unknown]
  - Pancytopenia [Unknown]
  - Diarrhoea [Unknown]

NARRATIVE: CASE EVENT DATE: 20250507
